FAERS Safety Report 7017916-2 (Version None)
Quarter: 2010Q3

REPORT INFORMATION
  Report Type: 
  Country: None (occurrence: None)
  Receive Date: 20100927
  Receipt Date: 20100927
  Transmission Date: 20110219
  Serious: Yes (Hospitalization)
  Sender: FDA-Public Use
  Company Number: None

PATIENT
  Age: 93 Year
  Sex: Male
  Weight: 69 kg

DRUGS (1)
  1. PROMETHAZINE [Suspect]
     Indication: NAUSEA
     Dosage: 25 MG OTHER PO
     Route: 048
     Dates: start: 20100901, end: 20100903

REACTIONS (4)
  - CONFUSIONAL STATE [None]
  - MENTAL STATUS CHANGES [None]
  - NAUSEA [None]
  - SEDATION [None]
